FAERS Safety Report 8289503-X (Version None)
Quarter: 2012Q2

REPORT INFORMATION
  Report Type: 
  Country: None (occurrence: None)
  Receive Date: 20120417
  Receipt Date: 20120406
  Transmission Date: 20120825
  Serious: Yes (Death, Other)
  Sender: FDA-Public Use
  Company Number: US-BRISTOL-MYERS SQUIBB COMPANY-16510521

PATIENT
  Age: 37 Year
  Sex: Female

DRUGS (1)
  1. YERVOY [Suspect]

REACTIONS (5)
  - NEOPLASM MALIGNANT [None]
  - TACHYCARDIA [None]
  - ABDOMINAL PAIN [None]
  - DEATH [None]
  - HEADACHE [None]
